FAERS Safety Report 5033809-4 (Version None)
Quarter: 2006Q2

REPORT INFORMATION
  Report Type: 
  Country: None (occurrence: None)
  Receive Date: 20060620
  Receipt Date: 20060605
  Transmission Date: 20061013
  Serious: Yes (Life-Threatening)
  Sender: FDA-Public Use
  Company Number: 2006RR-02551

PATIENT
  Age: 67 Year
  Sex: Female

DRUGS (7)
  1. CIPROFLOXACIN [Suspect]
     Indication: URINARY TRACT INFECTION
     Dosage: 500 X 2MG, ORAL
     Route: 048
  2. AMIODARONE (AMIODARONE) [Suspect]
     Dosage: 400MG X2, ORAL
     Route: 048
  3. FUROSEMIDE [Concomitant]
  4. LISINOPRIL [Concomitant]
  5. DIGOXIN [Concomitant]
  6. WARFARIN SODIUM [Concomitant]
  7. .. [Concomitant]

REACTIONS (3)
  - DRUG INTERACTION [None]
  - HAEMODYNAMIC INSTABILITY [None]
  - TORSADE DE POINTES [None]
